FAERS Safety Report 13826180 (Version 1)
Quarter: 2017Q3

REPORT INFORMATION
  Report Type: Spontaneous
  Country: ES (occurrence: ES)
  Receive Date: 20170802
  Receipt Date: 20170802
  Transmission Date: 20171127
  Serious: Yes (Hospitalization)
  Sender: FDA-Public Use
  Company Number: ES-GLAXOSMITHKLINE-ES2017116707

PATIENT
  Age: 26 Year
  Sex: Female

DRUGS (3)
  1. DIAZEPAM. [Concomitant]
     Active Substance: DIAZEPAM
     Indication: ANXIETY
     Dosage: IF ANXIETY AS NEEDED
     Route: 048
     Dates: start: 20160525
  2. DOLMEN (SPAIN) [Concomitant]
     Indication: HEADACHE
     Dosage: IF HEADACHE AS NEEDED
     Route: 048
     Dates: start: 20161117
  3. LAMICTAL [Suspect]
     Active Substance: LAMOTRIGINE
     Indication: EPILEPSY
     Dosage: 100 MG, BID
     Route: 048
     Dates: start: 20170313, end: 20170402

REACTIONS (5)
  - Cough [Recovered/Resolved]
  - Rash generalised [Recovering/Resolving]
  - Pyrexia [Recovered/Resolved]
  - Headache [Recovered/Resolved]
  - Odynophagia [Recovered/Resolved]

NARRATIVE: CASE EVENT DATE: 20170319
